FAERS Safety Report 17671056 (Version 2)
Quarter: 2020Q2

REPORT INFORMATION
  Report Type: Spontaneous
  Country: US (occurrence: US)
  Receive Date: 20200415
  Receipt Date: 20200519
  Transmission Date: 20200713
  Serious: No
  Sender: FDA-Public Use
  Company Number: US-ASTRAZENECA-2020SE43143

PATIENT
  Age: 32225 Day
  Sex: Female

DRUGS (1)
  1. SYMBICORT [Suspect]
     Active Substance: BUDESONIDE\FORMOTEROL FUMARATE DIHYDRATE
     Dosage: 160/4.5UG. 120 INHALATIONS. FREQUENCY UNKNOWN. UNKNOWN
     Route: 055

REACTIONS (6)
  - Wrong technique in device usage process [Unknown]
  - Product packaging quantity issue [Unknown]
  - Device issue [Unknown]
  - Nervousness [Unknown]
  - Intentional device misuse [Unknown]
  - Product dose omission [Unknown]

NARRATIVE: CASE EVENT DATE: 20200319
